FAERS Safety Report 7297431-1 (Version None)
Quarter: 2011Q1

REPORT INFORMATION
  Report Type: 
  Country: None (occurrence: None)
  Receive Date: 20110204
  Receipt Date: 20110121
  Transmission Date: 20110831
  Serious: Yes (Other)
  Sender: FDA-Public Use
  Company Number: 1000018575

PATIENT
  Age: 48 Year
  Sex: Female

DRUGS (2)
  1. ESCITALOPRAM [Suspect]
     Indication: MAJOR DEPRESSION
     Dosage: 20 MG (20 MG,1 IN 1 D),ORAL
     Route: 048
  2. ESCITALOPRAM [Suspect]
     Indication: ANXIETY DISORDER
     Dosage: 20 MG (20 MG,1 IN 1 D),ORAL
     Route: 048

REACTIONS (3)
  - SUICIDAL IDEATION [None]
  - ANXIETY [None]
  - CONDITION AGGRAVATED [None]
